FAERS Safety Report 6320051-X (Version None)
Quarter: 2009Q3

REPORT INFORMATION
  Report Type: 
  Country: None (occurrence: None)
  Receive Date: 20090822
  Receipt Date: 20081015
  Transmission Date: 20100115
  Serious: No
  Sender: FDA-Public Use
  Company Number: US-ABBOTT-08P-163-0482062-00

PATIENT
  Sex: Female

DRUGS (10)
  1. NIASPAN [Suspect]
     Indication: BLOOD TRIGLYCERIDES INCREASED
     Dates: start: 20080601, end: 20080701
  2. NIASPAN [Suspect]
     Dates: start: 20080701
  3. IBUPROFEN [Concomitant]
     Indication: DRUG USE FOR UNKNOWN INDICATION
  4. ASPIRIN [Concomitant]
     Indication: DRUG USE FOR UNKNOWN INDICATION
  5. HYZAAR [Concomitant]
     Indication: DRUG USE FOR UNKNOWN INDICATION
     Dosage: 100MG/25MG
  6. DILTIAZEM HYDROCHLORIDE [Concomitant]
     Indication: DRUG USE FOR UNKNOWN INDICATION
  7. COLESEVELAM HYDROCHLORIDE [Concomitant]
     Indication: DRUG USE FOR UNKNOWN INDICATION
  8. EZETIMIBE [Concomitant]
     Indication: DRUG USE FOR UNKNOWN INDICATION
  9. ALPRAZOLAM [Concomitant]
     Indication: DRUG USE FOR UNKNOWN INDICATION
  10. LEVOTHYROXINE [Concomitant]
     Indication: DRUG USE FOR UNKNOWN INDICATION

REACTIONS (4)
  - DIZZINESS [None]
  - ERYTHEMA [None]
  - FLUSHING [None]
  - INFLUENZA LIKE ILLNESS [None]
